FAERS Safety Report 7915978-9 (Version None)
Quarter: 2011Q4

REPORT INFORMATION
  Report Type: 
  Country: None (occurrence: None)
  Receive Date: 20111115
  Receipt Date: 20111108
  Transmission Date: 20120403
  Serious: Yes (Other)
  Sender: FDA-Public Use
  Company Number: AU-ASTRAZENECA-2011SE67508

PATIENT
  Age: 64 Year
  Sex: Female

DRUGS (2)
  1. SOLPRIN [Concomitant]
  2. ARIMIDEX [Suspect]
     Route: 048
     Dates: start: 20071201

REACTIONS (1)
  - BLOOD CREATININE INCREASED [None]
